FAERS Safety Report 7569017-2 (Version None)
Quarter: 2011Q2

REPORT INFORMATION
  Report Type: 
  Country: None (occurrence: None)
  Receive Date: 20110623
  Receipt Date: 20110613
  Transmission Date: 20111010
  Serious: Yes (Hospitalization)
  Sender: FDA-Public Use
  Company Number: GB-SANOFI-AVENTIS-F01200700067

PATIENT
  Age: 47 Year
  Sex: Female

DRUGS (18)
  1. BEVACIZUMAB [Suspect]
     Route: 065
  2. BEVACIZUMAB [Suspect]
     Route: 065
     Dates: end: 20070126
  3. DEXAMETHASONE [Concomitant]
  4. METOCLOPRAMIDE [Concomitant]
  5. OXALIPLATIN [Suspect]
     Route: 065
     Dates: end: 20070126
  6. LANSOPRAZOLE [Concomitant]
  7. LOPERAMIDE [Concomitant]
  8. LORAZEPAM [Concomitant]
  9. OXALIPLATIN [Suspect]
     Dosage: UNIT DOSE: 130 MG/M2
     Route: 042
     Dates: start: 20061214
  10. CAPECITABINE [Suspect]
     Route: 048
     Dates: end: 20070130
  11. CAPECITABINE [Suspect]
     Dosage: UNIT DOSE: 1000 MG/M2
     Route: 048
     Dates: start: 20061214, end: 20070108
  12. ASPIRIN [Suspect]
     Route: 065
     Dates: end: 20070116
  13. BENDROFLUAZIDE [Concomitant]
     Dates: start: 20070126
  14. CAPECITABINE [Suspect]
     Route: 065
     Dates: start: 20070201
  15. BEVACIZUMAB [Suspect]
     Dosage: UNIT DOSE: 100 MG
     Route: 042
     Dates: start: 20061214
  16. CETUXIMAB [Suspect]
     Route: 065
  17. FLOXACILLIN SODIUM [Concomitant]
     Dates: start: 20070101, end: 20070101
  18. OXALIPLATIN [Suspect]
     Route: 065

REACTIONS (3)
  - FAECES DISCOLOURED [None]
  - VOMITING [None]
  - THROAT TIGHTNESS [None]
